FAERS Safety Report 9216362 (Version 1)
Quarter: 2013Q2

REPORT INFORMATION
  Report Type: Spontaneous
  Country: DE (occurrence: None)
  Receive Date: 20130403
  Receipt Date: 20130403
  Transmission Date: 20140414
  Serious: Yes (Congenital Anomaly, Other)
  Sender: FDA-Public Use
  Company Number: GER/GER/13/0028793

PATIENT
  Sex: Male

DRUGS (3)
  1. FLUOXETINE (FLUOXETINE HYDROCHLORIDE) [Suspect]
     Indication: DEPRESSION
     Route: 064
     Dates: start: 20110830, end: 20120522
  2. LAMICTAL (LAMOTRIGINE) TABLET [Suspect]
     Indication: DEPRESSION
     Dates: start: 20110830, end: 20120522
  3. CYMBALTA (DULOXETINE HYDROCHLORIDE) [Suspect]
     Indication: DEPRESSION
     Route: 064
     Dates: start: 20110830, end: 20120522

REACTIONS (4)
  - Agitation neonatal [None]
  - Neonatal respiratory distress syndrome [None]
  - Atrial septal defect [None]
  - Maternal drugs affecting foetus [None]
